FAERS Safety Report 6737882-4 (Version None)
Quarter: 2010Q2

REPORT INFORMATION
  Report Type: 
  Country: None (occurrence: None)
  Receive Date: 20100524
  Receipt Date: 20100513
  Transmission Date: 20101027
  Serious: No
  Sender: FDA-Public Use
  Company Number: US-B.I. PHARMACEUTICALS,INC./RIDGEFIELD-2010-BP-05646BP

PATIENT

DRUGS (1)
  1. MICARDIS HCT [Suspect]

REACTIONS (3)
  - EOSINOPHIL COUNT INCREASED [None]
  - INFLUENZA LIKE ILLNESS [None]
  - PERIORBITAL DISORDER [None]
